FAERS Safety Report 5168962-5 (Version None)
Quarter: 2006Q4

REPORT INFORMATION
  Report Type: 
  Country: None (occurrence: None)
  Receive Date: 20061211
  Receipt Date: 20061204
  Transmission Date: 20070319
  Serious: Yes (Hospitalization)
  Sender: FDA-Public Use
  Company Number: FR-GLAXOSMITHKLINE-B0449591A

PATIENT
  Age: 79 Year
  Sex: Male

DRUGS (8)
  1. ARIXTRA [Suspect]
     Indication: DEEP VEIN THROMBOSIS
     Dosage: 7.5MG PER DAY
     Route: 058
     Dates: start: 20061022, end: 20061120
  2. ZELITREX [Concomitant]
  3. IMOVANE [Concomitant]
     Dosage: 3.75MG PER DAY
     Route: 048
  4. SPECIAFOLDINE [Concomitant]
     Dosage: 15MG PER DAY
     Route: 048
     Dates: start: 20061019
  5. CELIPROLOL [Concomitant]
     Indication: SUPRAVENTRICULAR EXTRASYSTOLES
     Dosage: 200MG PER DAY
     Route: 048
     Dates: end: 20061120
  6. VITAMINE B12 [Concomitant]
     Dosage: 1000MCG WEEKLY
     Route: 048
     Dates: start: 20061019
  7. OMIX [Concomitant]
     Dosage: .4MG PER DAY
     Route: 048
     Dates: start: 20061029
  8. DITROPAN [Concomitant]

REACTIONS (1)
  - SPONTANEOUS HAEMATOMA [None]
